FAERS Safety Report 25589352 (Version 1)
Quarter: 2025Q3

REPORT INFORMATION
  Report Type: Spontaneous
  Country: EU (occurrence: EU)
  Receive Date: 20250722
  Receipt Date: 20250722
  Transmission Date: 20251021
  Serious: Yes (Life-Threatening, Hospitalization, Other)
  Sender: RISING PHARMACEUTICALS
  Company Number: EU-RISINGPHARMA-IT-2025RISLIT00348

PATIENT
  Sex: Female
  Weight: 1.554 kg

DRUGS (2)
  1. DEXMEDETOMIDINE HYDROCHLORIDE [Suspect]
     Active Substance: DEXMEDETOMIDINE HYDROCHLORIDE
     Indication: Product used for unknown indication
     Route: 050
  2. CAFFEINE [Concomitant]
     Active Substance: CAFFEINE
     Route: 065

REACTIONS (12)
  - Infantile apnoea [Recovered/Resolved]
  - Toxicity to various agents [Recovered/Resolved]
  - Electroencephalogram abnormal [Recovered/Resolved]
  - Irritability [Recovered/Resolved]
  - Hypotonia [Recovered/Resolved]
  - Dyspnoea [Recovered/Resolved]
  - Hyperglycaemia [Recovered/Resolved]
  - Hypocapnia [Recovered/Resolved]
  - Blood lactic acid increased [Recovered/Resolved]
  - Hyporesponsive to stimuli [Recovered/Resolved]
  - Accidental overdose [Unknown]
  - Product appearance confusion [Unknown]
